FAERS Safety Report 9108439 (Version 2)
Quarter: 2013Q1

REPORT INFORMATION
  Report Type: Spontaneous
  Country: FR (occurrence: FR)
  Receive Date: 20130222
  Receipt Date: 20130329
  Transmission Date: 20140127
  Serious: Yes (Hospitalization, Other)
  Sender: FDA-Public Use
  Company Number: FR-009507513-1302FRA008377

PATIENT
  Age: 51 Year
  Sex: Female
  Weight: 79 kg

DRUGS (5)
  1. VICTRELIS [Suspect]
     Indication: HEPATITIS C VIRUS TEST POSITIVE
     Dosage: 12 DF, UNK
     Route: 048
     Dates: start: 20111223, end: 20120825
  2. VIRAFERONPEG [Suspect]
     Indication: HEPATITIS C VIRUS TEST POSITIVE
     Dosage: 120 MICROGRAM, UNK
     Route: 058
     Dates: start: 20111125, end: 20121025
  3. REBETOL [Suspect]
     Indication: HEPATITIS C VIRUS TEST POSITIVE
     Dosage: 6 DF, QD
     Route: 048
     Dates: start: 20111125, end: 201112
  4. REBETOL [Suspect]
     Dosage: 5 DF, QD
     Route: 048
     Dates: start: 201112, end: 20121025
  5. LEVOTHYROX [Concomitant]
     Indication: THYROIDITIS
     Dosage: 1 DF, QD
     Route: 048
     Dates: start: 201010

REACTIONS (6)
  - Ischaemic stroke [Recovered/Resolved]
  - Paraesthesia [Recovered/Resolved]
  - Hyperaesthesia [Recovered/Resolved]
  - Hypoaesthesia [Recovered/Resolved]
  - Visual impairment [Recovered/Resolved]
  - Sensory disturbance [Recovered/Resolved]
